FAERS Safety Report 25673186 (Version 2)
Quarter: 2025Q3

REPORT INFORMATION
  Report Type: Spontaneous
  Country: US (occurrence: US)
  Receive Date: 20250813
  Receipt Date: 20250902
  Transmission Date: 20251020
  Serious: Yes (Death, Life-Threatening, Hospitalization)
  Sender: TEVA
  Company Number: US-TEVA-VS-3360069

PATIENT
  Age: 65 Year
  Sex: Male

DRUGS (4)
  1. BENDAMUSTINE [Suspect]
     Active Substance: BENDAMUSTINE
     Indication: Chronic myelomonocytic leukaemia
     Route: 065
  2. ZANUBRUTINIB [Suspect]
     Active Substance: ZANUBRUTINIB
     Indication: Waldenstrom^s macroglobulinaemia
     Route: 065
  3. HYDROXYUREA [Suspect]
     Active Substance: HYDROXYUREA
     Indication: Hyperleukocytosis
     Route: 065
  4. RITUXIMAB [Suspect]
     Active Substance: RITUXIMAB
     Indication: Chronic myelomonocytic leukaemia
     Route: 065

REACTIONS (16)
  - Hyperleukocytosis [Fatal]
  - Multiple organ dysfunction syndrome [Fatal]
  - Tumour lysis syndrome [Unknown]
  - Disseminated intravascular coagulation [Unknown]
  - Subdural haematoma [Unknown]
  - Aphasia [Unknown]
  - Acute kidney injury [Unknown]
  - Aphasia [Unknown]
  - Myocardial injury [Unknown]
  - Cytopenia [Fatal]
  - Drug ineffective [Fatal]
  - Anaemia [Unknown]
  - Thrombosis [Unknown]
  - Acute respiratory failure [Unknown]
  - Abdominal pain [Unknown]
  - Hyperviscosity syndrome [Fatal]
